FAERS Safety Report 10172957 (Version 1)
Quarter: 2014Q2

REPORT INFORMATION
  Report Type: Spontaneous
  Country: IO (occurrence: IO)
  Receive Date: 20140515
  Receipt Date: 20140515
  Transmission Date: 20141212
  Serious: Yes (Other)
  Sender: FDA-Public Use
  Company Number: IO-JNJFOC-20140506360

PATIENT
  Sex: Female

DRUGS (1)
  1. STELARA [Suspect]
     Indication: PSORIASIS
     Route: 058
     Dates: start: 2012

REACTIONS (2)
  - Drug-induced liver injury [Recovered/Resolved]
  - Drug dose omission [Unknown]
